FAERS Safety Report 14763720 (Version 1)
Quarter: 2018Q2

REPORT INFORMATION
  Report Type: Spontaneous
  Country: US (occurrence: US)
  Receive Date: 20180410
  Receipt Date: 20180410
  Transmission Date: 20180711
  Serious: Yes (Hospitalization)
  Sender: FDA-Public Use
  Company Number: None

PATIENT
  Age: 35 Year
  Sex: Female

DRUGS (1)
  1. AMPYRA [Suspect]
     Active Substance: DALFAMPRIDINE
     Indication: MULTIPLE SCLEROSIS
     Route: 048
     Dates: start: 20171220

REACTIONS (5)
  - Renal failure [None]
  - Urinary tract infection [None]
  - Headache [None]
  - Dysarthria [None]
  - Diplopia [None]

NARRATIVE: CASE EVENT DATE: 20180308
